FAERS Safety Report 22189398 (Version 15)
Quarter: 2024Q4

REPORT INFORMATION
  Report Type: Spontaneous
  Country: CA (occurrence: CA)
  Receive Date: 20230410
  Receipt Date: 20241217
  Transmission Date: 20250114
  Serious: Yes (Hospitalization, Other)
  Sender: CELLTRION
  Company Number: CA-CELLTRION INC.-2023CA006909

PATIENT

DRUGS (10)
  1. INFLECTRA [Suspect]
     Active Substance: INFLIXIMAB-DYYB
     Indication: Crohn^s disease
     Dosage: UNK, EVERY 6 WEEKS
     Route: 042
  2. INFLECTRA [Suspect]
     Active Substance: INFLIXIMAB-DYYB
     Dosage: 5 MG/KG, EVERY 6 WEEKS
     Route: 042
     Dates: start: 20220603
  3. INFLECTRA [Suspect]
     Active Substance: INFLIXIMAB-DYYB
     Dosage: 5 MG/KG, EVERY 6 WEEKS
     Route: 042
     Dates: start: 20230920
  4. INFLECTRA [Suspect]
     Active Substance: INFLIXIMAB-DYYB
     Dosage: 5 MG/KG, EVERY 6 WEEKS
     Route: 042
     Dates: start: 20231124
  5. INFLECTRA [Suspect]
     Active Substance: INFLIXIMAB-DYYB
     Dosage: 5 MG/KG (580 MG), AFTER 9 WEEKS AND 5 DAYS (PRESCRIBED EVERY 6 WEEKS)
     Route: 042
     Dates: start: 20240131
  6. INFLECTRA [Suspect]
     Active Substance: INFLIXIMAB-DYYB
     Dosage: 5 MG/KG, EVERY 6 WEEKS
     Route: 042
     Dates: start: 20240607
  7. INFLECTRA [Suspect]
     Active Substance: INFLIXIMAB-DYYB
     Dosage: 575 MG (5 MG/KG), EVERY 6 WEEKS
     Route: 042
     Dates: start: 20240719
  8. INFLECTRA [Suspect]
     Active Substance: INFLIXIMAB-DYYB
     Dosage: 580 MG, 8 WEEKS AND 6 DAYS (5 MG/KG, EVERY 6 WEEKS)
     Route: 042
     Dates: start: 20240919
  9. INFLECTRA [Suspect]
     Active Substance: INFLIXIMAB-DYYB
     Dosage: 585 MG, 5 WEEKS AND 6 DAYS (5 MG/KG, EVERY 6 WEEKS)
     Route: 042
     Dates: start: 20241030
  10. PURINETHOL [Concomitant]
     Active Substance: MERCAPTOPURINE
     Dosage: 50 MG, UNKNOWN

REACTIONS (15)
  - Intestinal obstruction [Recovered/Resolved]
  - Pneumonia [Recovering/Resolving]
  - Intestinal obstruction [Recovered/Resolved]
  - Abdominal hernia [Unknown]
  - Stoma obstruction [Recovered/Resolved]
  - Lyme disease [Recovered/Resolved]
  - Influenza like illness [Not Recovered/Not Resolved]
  - Sputum discoloured [Not Recovered/Not Resolved]
  - Bronchitis bacterial [Recovering/Resolving]
  - Abdominal pain upper [Recovered/Resolved]
  - Viral infection [Recovered/Resolved]
  - Bacterial infection [Recovered/Resolved]
  - Cold sweat [Unknown]
  - Condition aggravated [Unknown]
  - Red blood cell count decreased [Recovered/Resolved]

NARRATIVE: CASE EVENT DATE: 20231016
